FAERS Safety Report 5314087-5 (Version None)
Quarter: 2007Q2

REPORT INFORMATION
  Report Type: 
  Country: None (occurrence: None)
  Receive Date: 20070501
  Receipt Date: 20070419
  Transmission Date: 20071010
  Serious: Yes (Hospitalization, Other)
  Sender: FDA-Public Use
  Company Number: FR-PFIZER INC-2007032217

PATIENT
  Age: 66 Year
  Sex: Male

DRUGS (5)
  1. TAHOR [Suspect]
     Dosage: TEXT:10MG
     Dates: start: 20070101, end: 20070320
  2. INIPOMP [Concomitant]
  3. KARDEGIC [Concomitant]
  4. ATACAND [Concomitant]
  5. CICLETANINE [Concomitant]

REACTIONS (5)
  - CERVICAL CORD COMPRESSION [None]
  - HEPATITIS [None]
  - JAUNDICE [None]
  - NEUROLOGICAL SYMPTOM [None]
  - PARAESTHESIA [None]
